FAERS Safety Report 12879523 (Version 3)
Quarter: 2020Q3

REPORT INFORMATION
  Report Type: Report from Study
  Country: US (occurrence: US)
  Receive Date: 20161025
  Receipt Date: 20181114
  Transmission Date: 20201104
  Serious: Yes (Hospitalization, Other)
  Sender: FDA-Public Use
  Company Number: US-ROCHE-1833635

PATIENT
  Age: 63 Year
  Sex: Female
  Weight: 70.82 kg

DRUGS (2)
  1. TRASTUZUMAB EMTANSINE [Suspect]
     Active Substance: ADO-TRASTUZUMAB EMTANSINE
     Dosage: MOST RECENT DOSE, 3.6 MG/KG, WAS ADMINISTERED ON 22/SEP/2016.
     Route: 042
  2. TASELISIB. [Suspect]
     Active Substance: TASELISIB
     Dosage: FROM 22/SEP/2016 UNTIL 12/OCT/2016, SHE RECEIVED ORAL TASELISIB, 4 MG
     Route: 048

REACTIONS (3)
  - Pyrexia [Recovered/Resolved]
  - Sepsis [Unknown]
  - Urinary retention [Unknown]

NARRATIVE: CASE EVENT DATE: 20160909
